FAERS Safety Report 9909747 (Version 1)
Quarter: 2014Q1

REPORT INFORMATION
  Report Type: Spontaneous
  Country: US (occurrence: US)
  Receive Date: 20140219
  Receipt Date: 20140219
  Transmission Date: 20141002
  Serious: No
  Sender: FDA-Public Use
  Company Number: US-PFIZER INC-2014046332

PATIENT
  Sex: Female

DRUGS (2)
  1. LYRICA [Suspect]
     Dosage: 75 MG DIRECTED TO TAKE 3 IN MORNING AND 2 AT NIGHT
  2. LYRICA [Suspect]
     Dosage: 75 MG 2 IN MORNING AND 1 AT NIGHT

REACTIONS (1)
  - Memory impairment [Unknown]
